FAERS Safety Report 13157761 (Version 3)
Quarter: 2017Q3

REPORT INFORMATION
  Report Type: Spontaneous
  Country: US (occurrence: US)
  Receive Date: 20170127
  Receipt Date: 20170706
  Transmission Date: 20171127
  Serious: No
  Sender: FDA-Public Use
  Company Number: US-JNJFOC-20161225112

PATIENT
  Age: 37 Year
  Sex: Male
  Weight: 74.84 kg

DRUGS (10)
  1. REMICADE [Suspect]
     Active Substance: INFLIXIMAB
     Indication: ANKYLOSING SPONDYLITIS
     Route: 042
     Dates: start: 20170208
  2. REMICADE [Suspect]
     Active Substance: INFLIXIMAB
     Indication: PROCTITIS
     Route: 042
     Dates: start: 20170308
  3. REMICADE [Suspect]
     Active Substance: INFLIXIMAB
     Indication: ANKYLOSING SPONDYLITIS
     Route: 042
     Dates: start: 20161128, end: 201612
  4. REMICADE [Suspect]
     Active Substance: INFLIXIMAB
     Indication: PROCTITIS
     Route: 042
     Dates: start: 20170208
  5. LIALDA [Concomitant]
     Active Substance: MESALAMINE
     Indication: PROCTITIS
     Dosage: 3 PILLS A DAY
     Route: 065
     Dates: start: 2013
  6. REMICADE [Suspect]
     Active Substance: INFLIXIMAB
     Indication: ANKYLOSING SPONDYLITIS
     Route: 042
     Dates: start: 20170308
  7. REMICADE [Suspect]
     Active Substance: INFLIXIMAB
     Indication: PROCTITIS
     Route: 042
     Dates: start: 20161128, end: 201612
  8. LIALDA [Concomitant]
     Active Substance: MESALAMINE
     Indication: COLITIS
     Dosage: 3 PILLS A DAY
     Route: 065
     Dates: start: 2013
  9. PENTASA [Concomitant]
     Active Substance: MESALAMINE
     Route: 048
     Dates: start: 2014
  10. IMURAN [Concomitant]
     Active Substance: AZATHIOPRINE
     Indication: IMMUNOSUPPRESSION
     Route: 065
     Dates: start: 2013

REACTIONS (8)
  - Infusion related reaction [Recovered/Resolved]
  - Product use in unapproved indication [Unknown]
  - Off label use [Unknown]
  - Insomnia [Recovered/Resolved]
  - Anxiety [Recovered/Resolved]
  - Panic attack [Recovered/Resolved]
  - Pain [Recovered/Resolved]
  - Urticaria [Recovering/Resolving]

NARRATIVE: CASE EVENT DATE: 2016
